FAERS Safety Report 7043042-2 (Version None)
Quarter: 2010Q4

REPORT INFORMATION
  Report Type: 
  Country: None (occurrence: None)
  Receive Date: 20101013
  Receipt Date: 20101007
  Transmission Date: 20110411
  Serious: Yes (Other)
  Sender: FDA-Public Use
  Company Number: US-MERCK-1010USA00797

PATIENT
  Age: 50 Year
  Sex: Female

DRUGS (4)
  1. IVEMEND [Suspect]
     Indication: NAUSEA
     Route: 042
     Dates: start: 20101001
  2. CYTOXAN [Concomitant]
     Route: 065
  3. ADRIAMYCIN PFS [Concomitant]
     Route: 065
  4. EMEND [Suspect]
     Indication: NAUSEA
     Route: 048

REACTIONS (4)
  - CHEST DISCOMFORT [None]
  - DYSPNOEA [None]
  - FLUSHING [None]
  - NAUSEA [None]
